FAERS Safety Report 15319192 (Version 1)
Quarter: 2018Q3

REPORT INFORMATION
  Report Type: Spontaneous
  Country: TW (occurrence: TW)
  Receive Date: 20180826
  Receipt Date: 20180826
  Transmission Date: 20181010
  Serious: Yes (Other)
  Sender: FDA-Public Use
  Company Number: TW-BAXTER-2018BAX022067

PATIENT
  Age: 56 Year
  Sex: Male

DRUGS (9)
  1. ENDOXAN INJECTION [Suspect]
     Active Substance: CYCLOPHOSPHAMIDE
     Indication: METASTASES TO LUNG
  2. DOXORUBICIN [Suspect]
     Active Substance: DOXORUBICIN
     Indication: METASTASES TO LIVER
  3. METHOTREXATE. [Suspect]
     Active Substance: METHOTREXATE
     Indication: METASTASES TO LIVER
  4. METHOTREXATE. [Suspect]
     Active Substance: METHOTREXATE
     Indication: METASTASES TO LUNG
  5. ENDOXAN INJECTION [Suspect]
     Active Substance: CYCLOPHOSPHAMIDE
     Indication: METASTASES TO LIVER
  6. DOXORUBICIN [Suspect]
     Active Substance: DOXORUBICIN
     Indication: TRANSITIONAL CELL CANCER OF RENAL PELVIS AND URETER METASTATIC
     Dosage: PALLIATIVE CHEMOTHERAPY
     Route: 065
  7. ENDOXAN INJECTION [Suspect]
     Active Substance: CYCLOPHOSPHAMIDE
     Indication: TRANSITIONAL CELL CANCER OF RENAL PELVIS AND URETER METASTATIC
     Dosage: PALLIATIVE CHEMOTHERAPY
     Route: 065
  8. DOXORUBICIN [Suspect]
     Active Substance: DOXORUBICIN
     Indication: METASTASES TO LUNG
  9. METHOTREXATE. [Suspect]
     Active Substance: METHOTREXATE
     Indication: TRANSITIONAL CELL CANCER OF RENAL PELVIS AND URETER METASTATIC
     Dosage: PALLIATIVE CHEMOTHERAPY
     Route: 065

REACTIONS (1)
  - Emphysema [Recovered/Resolved]
